FAERS Safety Report 21046837 (Version 1)
Quarter: 2022Q3

REPORT INFORMATION
  Report Type: Spontaneous
  Country: BE (occurrence: BE)
  Receive Date: 20220706
  Receipt Date: 20220706
  Transmission Date: 20221027
  Serious: Yes (Other)
  Sender: FDA-Public Use
  Company Number: None

PATIENT
  Sex: Female

DRUGS (3)
  1. XANAX [Suspect]
     Active Substance: ALPRAZOLAM
     Dosage: USE AFTER THE FIRST OPERATION
  2. PHENYLEPHRINE HYDROCHLORIDE\TROPICAMIDE [Suspect]
     Active Substance: PHENYLEPHRINE HYDROCHLORIDE\TROPICAMIDE
     Dosage: UNK
  3. BENOXINATE HYDROCHLORIDE [Suspect]
     Active Substance: BENOXINATE HYDROCHLORIDE
     Dosage: UNK
     Route: 047

REACTIONS (8)
  - Malaise [Unknown]
  - Agitation [Unknown]
  - Syncope [Unknown]
  - Palpitations [Unknown]
  - Nervousness [Unknown]
  - Hypotension [Unknown]
  - Loss of consciousness [Unknown]
  - Fall [Unknown]
